FAERS Safety Report 24766724 (Version 3)
Quarter: 2025Q3

REPORT INFORMATION
  Report Type: Spontaneous
  Country: EU (occurrence: EU)
  Receive Date: 20241223
  Receipt Date: 20250923
  Transmission Date: 20251020
  Serious: Yes (Life-Threatening, Other)
  Sender: PFIZER
  Company Number: EU-PFIZER INC-202400329301

PATIENT
  Age: 18 Year
  Sex: Female

DRUGS (26)
  1. AVIBACTAM SODIUM\CEFTAZIDIME [Suspect]
     Active Substance: AVIBACTAM SODIUM\CEFTAZIDIME
     Indication: Evidence based treatment
  2. AVIBACTAM SODIUM\CEFTAZIDIME [Suspect]
     Active Substance: AVIBACTAM SODIUM\CEFTAZIDIME
     Indication: Antibiotic therapy
  3. MEROPENEM [Suspect]
     Active Substance: MEROPENEM
  4. VANCOMYCIN [Suspect]
     Active Substance: VANCOMYCIN
     Indication: Febrile neutropenia
  5. VANCOMYCIN [Suspect]
     Active Substance: VANCOMYCIN
     Indication: Evidence based treatment
  6. VANCOMYCIN [Suspect]
     Active Substance: VANCOMYCIN
     Indication: Antibiotic therapy
  7. FOSFOMYCIN [Suspect]
     Active Substance: FOSFOMYCIN
     Indication: Febrile neutropenia
  8. FOSFOMYCIN [Suspect]
     Active Substance: FOSFOMYCIN
     Indication: Evidence based treatment
  9. AMIKACIN [Suspect]
     Active Substance: AMIKACIN
     Indication: Febrile neutropenia
  10. AMIKACIN [Suspect]
     Active Substance: AMIKACIN
     Indication: Evidence based treatment
  11. AMIKACIN [Suspect]
     Active Substance: AMIKACIN
     Indication: Antibiotic therapy
  12. PIPERACILLIN SODIUM\TAZOBACTAM SODIUM [Suspect]
     Active Substance: PIPERACILLIN SODIUM\TAZOBACTAM SODIUM
     Indication: Febrile neutropenia
  13. COLISTIN [Suspect]
     Active Substance: COLISTIN
     Indication: Pseudomonas infection
  14. CILASTATIN\IMIPENEM\RELEBACTAM [Suspect]
     Active Substance: CILASTATIN\IMIPENEM\RELEBACTAM
     Indication: Pseudomonas infection
  15. IDARUBICIN HYDROCHLORIDE [Concomitant]
     Active Substance: IDARUBICIN HYDROCHLORIDE
     Indication: Acute undifferentiated leukaemia
  16. FLUDARABINE [Concomitant]
     Active Substance: FLUDARABINE PHOSPHATE
     Indication: Acute undifferentiated leukaemia
  17. CYTARABINE [Concomitant]
     Active Substance: CYTARABINE
     Indication: Acute undifferentiated leukaemia
  18. VENETOCLAX [Concomitant]
     Active Substance: VENETOCLAX
     Indication: Acute undifferentiated leukaemia
  19. VENETOCLAX [Concomitant]
     Active Substance: VENETOCLAX
  20. DICLOFENAC [Concomitant]
     Active Substance: DICLOFENAC
     Indication: Analgesic therapy
     Route: 042
  21. FENTANYL [Concomitant]
     Active Substance: FENTANYL
     Indication: Analgesic therapy
     Route: 062
  22. AZACITIDINE [Concomitant]
     Active Substance: AZACITIDINE
     Indication: Acute undifferentiated leukaemia
  23. MELPHALAN [Concomitant]
     Active Substance: MELPHALAN
     Indication: Acute undifferentiated leukaemia
  24. CYCLOSPORINE [Concomitant]
     Active Substance: CYCLOSPORINE
     Indication: Immunosuppression
  25. MYCOPHENOLATE MOFETIL [Concomitant]
     Active Substance: MYCOPHENOLATE MOFETIL
     Indication: Immunosuppression
  26. CYCLOPHOSPHAMIDE [Concomitant]
     Active Substance: CYCLOPHOSPHAMIDE

REACTIONS (2)
  - Pathogen resistance [Recovered/Resolved]
  - Pseudomonas infection [Recovered/Resolved]
